FAERS Safety Report 6154774-2 (Version None)
Quarter: 2009Q2

REPORT INFORMATION
  Report Type: 
  Country: None (occurrence: None)
  Receive Date: 20090414
  Receipt Date: 20090403
  Transmission Date: 20091009
  Serious: Yes (Other)
  Sender: FDA-Public Use
  Company Number: PHHY2009JP13024

PATIENT
  Age: 35 Year

DRUGS (1)
  1. METHYLPHENIDATE HCL [Suspect]
     Dosage: UNK
     Route: 042

REACTIONS (3)
  - HAEMOPHILUS INFECTION [None]
  - INCORRECT ROUTE OF DRUG ADMINISTRATION [None]
  - NECROTISING FASCIITIS [None]
